FAERS Safety Report 22211411 (Version 1)
Quarter: 2023Q2

REPORT INFORMATION
  Report Type: Spontaneous
  Country: CA (occurrence: CA)
  Receive Date: 20230414
  Receipt Date: 20230414
  Transmission Date: 20230722
  Serious: Yes (Other)
  Sender: FDA-Public Use
  Company Number: CA-PFIZER INC-202300152200

PATIENT
  Age: 38 Year
  Sex: Male

DRUGS (1)
  1. ABRILADA [Suspect]
     Active Substance: ADALIMUMAB-AFZB
     Dosage: 160 MG ON WEEK 0, 80 MG ON WEEK 2, THEN 40 MG EVERY 2 WEEKS FROM WEEK 4
     Route: 058
     Dates: start: 20220628

REACTIONS (6)
  - Crohn^s disease [Unknown]
  - Anxiety [Unknown]
  - Pain [Unknown]
  - Stress [Unknown]
  - Eating disorder [Unknown]
  - Insomnia [Unknown]
